FAERS Safety Report 6061176-6 (Version None)
Quarter: 2009Q1

REPORT INFORMATION
  Report Type: 
  Country: None (occurrence: None)
  Receive Date: 20090202
  Receipt Date: 20090128
  Transmission Date: 20090719
  Serious: Yes (Life-Threatening)
  Sender: FDA-Public Use
  Company Number: FR-ASTRAZENECA-2009CG00295

PATIENT
  Age: 15273 Day
  Sex: Female

DRUGS (12)
  1. FOSCAVIR [Suspect]
     Route: 042
     Dates: start: 20081022, end: 20081024
  2. FANSIDAR [Suspect]
     Route: 048
     Dates: start: 20081023, end: 20081023
  3. FANSIDAR [Suspect]
     Route: 048
     Dates: start: 20081024, end: 20081024
  4. NEORAL [Suspect]
     Indication: GRAFT VERSUS HOST DISEASE
     Route: 048
     Dates: start: 20080929, end: 20081024
  5. CLAMOXYL [Suspect]
     Route: 048
     Dates: start: 20081021, end: 20081026
  6. NOXAFIL [Suspect]
     Route: 048
     Dates: start: 20081021, end: 20081026
  7. ALPRAZOLAM [Concomitant]
  8. CORTANCYL [Concomitant]
  9. LEDERFOLIN [Concomitant]
  10. STILNOX [Concomitant]
  11. CALCIDOSE [Concomitant]
  12. SOLU-MEDROL [Concomitant]
     Indication: GRAFT VERSUS HOST DISEASE

REACTIONS (5)
  - BLINDNESS CORTICAL [None]
  - CEREBROVASCULAR ACCIDENT [None]
  - CONVULSION [None]
  - HEADACHE [None]
  - REVERSIBLE POSTERIOR LEUKOENCEPHALOPATHY SYNDROME [None]
